FAERS Safety Report 4340867-9 (Version None)
Quarter: 2004Q2

REPORT INFORMATION
  Report Type: 
  Country: None (occurrence: None)
  Receive Date: 20040413
  Receipt Date: 20040401
  Transmission Date: 20050107
  Serious: Yes (Other)
  Sender: FDA-Public Use
  Company Number: US-JNJFOC-20040400463

PATIENT
  Age: 80 Year
  Sex: Female
  Weight: 72.5755 kg

DRUGS (6)
  1. DITROPAN XL [Suspect]
     Indication: DRUG USE FOR UNKNOWN INDICATION
     Dosage: 5 MG, 1 IN 1 DAY, ORAL
     Route: 048
     Dates: start: 20020201
  2. LIPITOR [Concomitant]
  3. CELEBREX [Concomitant]
  4. NEXIUM [Concomitant]
  5. NORVASC [Concomitant]
  6. ATENOLOL [Concomitant]

REACTIONS (2)
  - AMNESIA [None]
  - TRANSIENT ISCHAEMIC ATTACK [None]
